FAERS Safety Report 8809354 (Version 5)
Quarter: 2012Q4

REPORT INFORMATION
  Report Type: Report from Study
  Country: US (occurrence: US)
  Receive Date: 20120926
  Receipt Date: 20121221
  Transmission Date: 20130627
  Serious: Yes (Hospitalization)
  Sender: FDA-Public Use
  Company Number: US-JNJFOC-20120908734

PATIENT
  Age: 7 Year
  Sex: Female
  Weight: 23.4 kg

DRUGS (4)
  1. REMICADE [Suspect]
     Indication: CROHN^S DISEASE
     Route: 042
     Dates: start: 20111004
  2. HUMIRA [Concomitant]
     Dates: start: 20120420
  3. 5-ASA [Concomitant]
  4. PREDNISONE [Concomitant]

REACTIONS (1)
  - Colitis ulcerative [Recovered/Resolved]
